FAERS Safety Report 8621727-1 (Version None)
Quarter: 2012Q3

REPORT INFORMATION
  Report Type: 
  Country: None (occurrence: None)
  Receive Date: 20120821
  Receipt Date: 20120821
  Transmission Date: 20120928
  Serious: Yes (Hospitalization)
  Sender: FDA-Public Use
  Company Number: None

PATIENT
  Age: 40 Year
  Sex: Male
  Weight: 68.2 kg

DRUGS (1)
  1. LORAZEPAM [Suspect]
     Indication: ANXIETY
     Dosage: 1MG PRN	 PO
     Route: 048
     Dates: start: 20120705, end: 20120712

REACTIONS (4)
  - SUICIDAL IDEATION [None]
  - SEDATION [None]
  - DEPRESSION [None]
  - OVERDOSE [None]
